FAERS Safety Report 9272025 (Version 3)
Quarter: 2013Q2

REPORT INFORMATION
  Report Type: Spontaneous
  Country: US (occurrence: US)
  Receive Date: 20130506
  Receipt Date: 20130612
  Transmission Date: 20140414
  Serious: Yes (Life-Threatening, Hospitalization, Other)
  Sender: FDA-Public Use
  Company Number: US-GILEAD-2013-0074367

PATIENT
  Age: 67 Year
  Sex: Male

DRUGS (2)
  1. RANEXA [Suspect]
     Indication: DYSPNOEA EXERTIONAL
     Dosage: 500 MG, BID
     Route: 048
     Dates: start: 20130318, end: 20130402
  2. AMIODARONE [Suspect]
     Indication: VENTRICULAR TACHYCARDIA
     Dosage: UNK UNKNOWN, UNK
     Route: 048
     Dates: start: 20130318

REACTIONS (3)
  - Ventricular tachycardia [Recovered/Resolved]
  - Dyspnoea [Unknown]
  - Asthenia [Unknown]
